FAERS Safety Report 15858895 (Version 1)
Quarter: 2019Q1

REPORT INFORMATION
  Report Type: Spontaneous
  Country: US (occurrence: US)
  Receive Date: 20190123
  Receipt Date: 20190123
  Transmission Date: 20190417
  Serious: Yes (Hospitalization, Other)
  Sender: FDA-Public Use
  Company Number: US-OTSUKA-2018_024350

PATIENT
  Sex: Male

DRUGS (6)
  1. ABILIFY [Suspect]
     Active Substance: ARIPIPRAZOLE
     Indication: SCHIZOAFFECTIVE DISORDER
  2. ABILIFY [Suspect]
     Active Substance: ARIPIPRAZOLE
     Indication: ANTISOCIAL BEHAVIOUR
  3. ABILIFY [Suspect]
     Active Substance: ARIPIPRAZOLE
     Indication: ANXIETY
  4. ABILIFY [Suspect]
     Active Substance: ARIPIPRAZOLE
     Indication: SOCIAL ANXIETY DISORDER
  5. ABILIFY [Suspect]
     Active Substance: ARIPIPRAZOLE
     Indication: PSYCHOTIC DISORDER
  6. ABILIFY [Suspect]
     Active Substance: ARIPIPRAZOLE
     Indication: BIPOLAR DISORDER
     Dosage: (5-30 MG),QD
     Route: 065
     Dates: start: 20090628, end: 20160924

REACTIONS (12)
  - Mental disorder [Unknown]
  - Suicidal ideation [Unknown]
  - Obsessive-compulsive disorder [Unknown]
  - Compulsive shopping [Unknown]
  - Loss of employment [Unknown]
  - Economic problem [Unknown]
  - Product use in unapproved indication [Unknown]
  - Compulsive hoarding [Unknown]
  - Condition aggravated [Recovered/Resolved]
  - Eating disorder [Unknown]
  - Gambling disorder [Recovered/Resolved]
  - Suicide attempt [Unknown]

NARRATIVE: CASE EVENT DATE: 2014
